FAERS Safety Report 14263274 (Version 1)
Quarter: 2017Q4

REPORT INFORMATION
  Report Type: Spontaneous
  Country: PT (occurrence: PT)
  Receive Date: 20171208
  Receipt Date: 20171208
  Transmission Date: 20180321
  Serious: Yes (Other)
  Sender: FDA-Public Use
  Company Number: PT-009507513-1712PRT002476

PATIENT
  Age: 67 Year
  Sex: Female
  Weight: 54 kg

DRUGS (4)
  1. PULMICORT TURBUHALER [Concomitant]
     Active Substance: BUDESONIDE
     Indication: RHINITIS ALLERGIC
     Dosage: 2 INHALATIONS IN EACH NOSTRIL 1X/DAY; SUSPENSION FOR NASAL PULVERIZATION
     Route: 045
     Dates: start: 201709
  2. BRONCHO-VAXOM [Concomitant]
     Dosage: 1 TABLET 1X/DAY IN THE FIRST 10 DAYS SEP/OCT/NOV
     Route: 048
     Dates: start: 20170901, end: 20171110
  3. SINGULAIR [Suspect]
     Active Substance: MONTELUKAST SODIUM
     Indication: RHINITIS ALLERGIC
     Dosage: 10 MG, ONCE DAILY; FILM COATED TABLET
     Route: 048
     Dates: start: 20171128, end: 20171129
  4. SIMVASTATIN. [Concomitant]
     Active Substance: SIMVASTATIN
     Indication: HYPERCHOLESTEROLAEMIA
     Dosage: 20 MG, QD; COATED TABLET + TABLET
     Route: 048
     Dates: start: 2012

REACTIONS (3)
  - Pharyngeal oedema [Recovered/Resolved]
  - Dyspnoea [Recovered/Resolved]
  - Chest pain [Recovered/Resolved]

NARRATIVE: CASE EVENT DATE: 20171128
